FAERS Safety Report 25905087 (Version 1)
Quarter: 2025Q4

REPORT INFORMATION
  Report Type: Report from Study
  Country: US (occurrence: US)
  Receive Date: 20251010
  Receipt Date: 20251010
  Transmission Date: 20260118
  Serious: Yes (Other)
  Sender: UCB
  Company Number: US-UCBSA-2025016886

PATIENT
  Sex: Female
  Weight: 43.3 kg

DRUGS (5)
  1. FINTEPLA [Suspect]
     Active Substance: FENFLURAMINE
     Indication: Lennox-Gastaut syndrome
     Dosage: 3 ML QAM AND 3.5 ML QPM
     Dates: start: 20221026
  2. FINTEPLA [Suspect]
     Active Substance: FENFLURAMINE
     Dosage: 3 ML QAM AND 3.5 ML QPM
  3. FINTEPLA [Suspect]
     Active Substance: FENFLURAMINE
     Dosage: 3 ML QAM AND 3.5 ML QPM
  4. FINTEPLA [Suspect]
     Active Substance: FENFLURAMINE
     Dosage: 14.3 MILLIGRAM PER DAY
  5. FINTEPLA [Suspect]
     Active Substance: FENFLURAMINE
     Dosage: 3 ML QAM + 3.5 ML QPM

REACTIONS (5)
  - Seizure [Not Recovered/Not Resolved]
  - Ear infection [Not Recovered/Not Resolved]
  - Influenza [Not Recovered/Not Resolved]
  - Alopecia [Not Recovered/Not Resolved]
  - Product use issue [Unknown]

NARRATIVE: CASE EVENT DATE: 20250101
